FAERS Safety Report 4801875-4 (Version None)
Quarter: 2005Q4

REPORT INFORMATION
  Report Type: 
  Country: None (occurrence: None)
  Receive Date: 20051018
  Receipt Date: 20050920
  Transmission Date: 20060501
  Serious: Yes (Hospitalization, Other)
  Sender: FDA-Public Use
  Company Number: PHEH2005US10554

PATIENT
  Age: 68 Year
  Sex: Male

DRUGS (1)
  1. TEGRETOL [Suspect]
     Indication: CONVULSION

REACTIONS (3)
  - CONVULSION [None]
  - SHOULDER OPERATION [None]
  - UPPER LIMB FRACTURE [None]
